FAERS Safety Report 5031292-6 (Version None)
Quarter: 2006Q2

REPORT INFORMATION
  Report Type: 
  Country: None (occurrence: None)
  Receive Date: 20060615
  Receipt Date: 20060605
  Transmission Date: 20061013
  Serious: Yes (Hospitalization)
  Sender: FDA-Public Use
  Company Number: L06-ITA-02196-01

PATIENT
  Age: 77 Year
  Sex: Female

DRUGS (2)
  1. CARBAMAZEPINE [Suspect]
     Indication: EPILEPSY
     Dosage: 400 MG DAILY
  2. CARBAMAZEPINE [Suspect]
     Indication: EPILEPSY
     Dosage: 100 MG DAILY

REACTIONS (4)
  - ASTHENIA [None]
  - CUTANEOUS LUPUS ERYTHEMATOSUS [None]
  - GAMMA-GLUTAMYLTRANSFERASE INCREASED [None]
  - MYALGIA [None]
